FAERS Safety Report 5838204-3 (Version None)
Quarter: 2008Q3

REPORT INFORMATION
  Report Type: 
  Country: None (occurrence: None)
  Receive Date: 20080808
  Receipt Date: 20080801
  Transmission Date: 20090109
  Serious: Yes (Hospitalization)
  Sender: FDA-Public Use
  Company Number: FR-ASTRAZENECA-2008CG01170

PATIENT
  Age: 50 Year
  Sex: Male

DRUGS (12)
  1. NEXIUM [Suspect]
     Route: 048
     Dates: start: 20080322, end: 20080407
  2. NEXIUM [Suspect]
     Route: 048
     Dates: start: 20080520, end: 20080522
  3. MOPRAL [Suspect]
     Route: 048
     Dates: start: 20080307, end: 20080322
  4. MOPRAL [Suspect]
     Route: 048
     Dates: start: 20080515, end: 20080520
  5. ACTRAPID [Suspect]
     Route: 058
     Dates: start: 20080308, end: 20080408
  6. KEPPRA [Suspect]
     Route: 048
     Dates: start: 20080321, end: 20080408
  7. VANCOMYCIN HCL [Suspect]
     Indication: SUPERINFECTION
     Route: 042
     Dates: start: 20080309, end: 20080326
  8. LASIX [Suspect]
     Route: 042
     Dates: start: 20080309, end: 20080317
  9. TAHOR [Suspect]
     Route: 048
     Dates: start: 20080312, end: 20080408
  10. HYPNOVEL [Suspect]
     Route: 042
     Dates: start: 20080313, end: 20080328
  11. KETALAR [Suspect]
     Route: 048
     Dates: start: 20080307, end: 20080401
  12. TRIFLUCAN [Suspect]
     Route: 048
     Dates: start: 20080307, end: 20080401

REACTIONS (1)
  - DRUG RASH WITH EOSINOPHILIA AND SYSTEMIC SYMPTOMS [None]
